FAERS Safety Report 8240515-1 (Version None)
Quarter: 2012Q1

REPORT INFORMATION
  Report Type: 
  Country: None (occurrence: None)
  Receive Date: 20120328
  Receipt Date: 20120314
  Transmission Date: 20120608
  Serious: Yes (Death)
  Sender: FDA-Public Use
  Company Number: US-ROCHE-1053491

PATIENT
  Sex: Female

DRUGS (4)
  1. CATHFLO ACTIVASE [Suspect]
     Indication: PRODUCT USED FOR UNKNOWN INDICATION
  2. ACTIVASE [Suspect]
     Indication: ACUTE MYOCARDIAL INFARCTION
  3. ACTIVASE [Suspect]
     Indication: CEREBRAL INFARCTION
  4. ACTIVASE [Suspect]
     Indication: HEMIPLEGIA

REACTIONS (1)
  - DEATH [None]
